FAERS Safety Report 6756185-5 (Version None)
Quarter: 2010Q2

REPORT INFORMATION
  Report Type: 
  Country: None (occurrence: None)
  Receive Date: 20100604
  Receipt Date: 20100524
  Transmission Date: 20101027
  Serious: Yes (Other)
  Sender: FDA-Public Use
  Company Number: PHHY2010JP34130

PATIENT

DRUGS (1)
  1. TEGRETOL [Suspect]
     Dosage: 100 MG, UNK
     Route: 064

REACTIONS (3)
  - AMNIOTIC BAND SYNDROME [None]
  - DRUG EXPOSURE DURING PREGNANCY [None]
  - SYNDACTYLY [None]
